FAERS Safety Report 19810750 (Version 1)
Quarter: 2021Q3

REPORT INFORMATION
  Report Type: Spontaneous
  Country: US (occurrence: US)
  Receive Date: 20210909
  Receipt Date: 20210909
  Transmission Date: 20211014
  Serious: Yes (Other)
  Sender: FDA-Public Use
  Company Number: US-MYLANLABS-2021M1060204

PATIENT
  Age: 41 Year
  Sex: Female
  Weight: 161 kg

DRUGS (3)
  1. VANCOMYCIN [Suspect]
     Active Substance: VANCOMYCIN
     Indication: PANNICULITIS
     Dosage: 2 GRAM ( LOADING DOSE)
     Route: 065
  2. PIPERACILLIN/TAZOBACTAM [Interacting]
     Active Substance: PIPERACILLIN SODIUM\TAZOBACTAM SODIUM
     Indication: PANNICULITIS
     Dosage: UNK
     Route: 065
  3. VANCOMYCIN [Interacting]
     Active Substance: VANCOMYCIN
     Dosage: 1.75 GRAM, Q8H (MAINTENANCE DOSE)
     Route: 065

REACTIONS (4)
  - Acute kidney injury [Recovering/Resolving]
  - Off label use [Unknown]
  - Antibiotic level above therapeutic [Unknown]
  - Drug interaction [Recovering/Resolving]
